FAERS Safety Report 5593906-1 (Version None)
Quarter: 2007Q4

REPORT INFORMATION
  Report Type: 
  Country: None (occurrence: None)
  Receive Date: 20071218
  Receipt Date: 20070606
  Transmission Date: 20080405
  Serious: Yes (Other)
  Sender: FDA-Public Use
  Company Number: 2007046130

PATIENT
  Sex: Male

DRUGS (2)
  1. BEXTRA [Suspect]
  2. VIOXX [Suspect]

REACTIONS (1)
  - MYOCARDIAL INFARCTION [None]
